FAERS Safety Report 17554245 (Version 1)
Quarter: 2020Q1

REPORT INFORMATION
  Report Type: Spontaneous
  Country: US (occurrence: US)
  Receive Date: 20200318
  Receipt Date: 20200318
  Transmission Date: 20200409
  Serious: Yes (Hospitalization)
  Sender: FDA-Public Use
  Company Number: US-SA-2020SA068810

PATIENT
  Age: 64 Year
  Sex: Male
  Weight: 85.7 kg

DRUGS (30)
  1. ACETYLSALICYLIC ACID [Suspect]
     Active Substance: ASPIRIN
     Indication: PRODUCT USED FOR UNKNOWN INDICATION
     Dosage: 81 MG
     Dates: start: 20181224
  2. ACETYLSALICYLIC ACID [Suspect]
     Active Substance: ASPIRIN
     Dosage: 100 MG, QD, AT 5:00
     Route: 048
     Dates: start: 20200113, end: 20200113
  3. TRAMADOL. [Concomitant]
     Active Substance: TRAMADOL
     Indication: ADVERSE EVENT
     Dosage: 100 MG, QD
     Dates: start: 20191229, end: 20200102
  4. CLOPIDOGREL BISULFATE. [Suspect]
     Active Substance: CLOPIDOGREL BISULFATE
     Dosage: 75 MG, QD, AT 8:02
     Route: 048
     Dates: start: 20191226, end: 20191226
  5. ACETYLSALICYLIC ACID [Suspect]
     Active Substance: ASPIRIN
     Dosage: 100 MG, QD, AT 6:12
     Route: 048
     Dates: start: 20191228, end: 20191228
  6. ACETAMINOPHEN. [Concomitant]
     Active Substance: ACETAMINOPHEN
     Dosage: 650 MG, QD
     Dates: start: 20191229
  7. BUPROPION. [Concomitant]
     Active Substance: BUPROPION
     Indication: ADVERSE EVENT
     Dosage: 450 MG, QD
     Dates: start: 20191224
  8. ZIPRASIDONE. [Concomitant]
     Active Substance: ZIPRASIDONE
     Dosage: 40 MG, QD
     Dates: start: 20180724
  9. CLOPIDOGREL BISULFATE. [Suspect]
     Active Substance: CLOPIDOGREL BISULFATE
     Indication: PRODUCT USED FOR UNKNOWN INDICATION
     Dosage: 75 MG, QD, AT 6:11
     Route: 048
     Dates: start: 20191225, end: 20191225
  10. CLOPIDOGREL BISULFATE. [Suspect]
     Active Substance: CLOPIDOGREL BISULFATE
     Dosage: 75 MG, QD, AT 7:59
     Route: 048
     Dates: start: 20191230, end: 20191230
  11. GABAPENTIN. [Concomitant]
     Active Substance: GABAPENTIN
     Dosage: 2400 MG
     Dates: start: 20191224
  12. ERGOCALCIFEROL. [Concomitant]
     Active Substance: ERGOCALCIFEROL
     Indication: PROPHYLAXIS
     Dosage: 50000 U, QD
     Dates: start: 20170629, end: 20200113
  13. CLOPIDOGREL BISULFATE. [Suspect]
     Active Substance: CLOPIDOGREL BISULFATE
     Dosage: 75 MG, QD, AT 7:56
     Route: 048
     Dates: start: 20191227, end: 20191227
  14. CLOPIDOGREL BISULFATE. [Suspect]
     Active Substance: CLOPIDOGREL BISULFATE
     Dosage: 75 MG, QD
     Route: 048
     Dates: start: 20191231, end: 20200112
  15. ACETYLSALICYLIC ACID [Suspect]
     Active Substance: ASPIRIN
     Dosage: 100 MG, QD, AT 7:59
     Route: 048
     Dates: start: 20191230, end: 20191230
  16. ACETYLSALICYLIC ACID [Suspect]
     Active Substance: ASPIRIN
     Dosage: 100 MG
     Route: 048
     Dates: start: 20191231, end: 20200112
  17. ACETYLSALICYLIC ACID [Suspect]
     Active Substance: ASPIRIN
     Dosage: 100 MG
     Route: 048
     Dates: start: 20200219
  18. ACETYLSALICYLIC ACID [Suspect]
     Active Substance: ASPIRIN
     Dosage: 100 MG, QD, AT 7:00
     Route: 048
     Dates: start: 20191229, end: 20191229
  19. ACETYLSALICYLIC ACID [Suspect]
     Active Substance: ASPIRIN
     Dosage: 100 MG, QD, AT 8:30
     Route: 048
     Dates: start: 20200218, end: 20200218
  20. ATORVASTATIN [Concomitant]
     Active Substance: ATORVASTATIN
     Dosage: 80 MG, QD
     Dates: start: 20160405
  21. LIDOCAINE. [Concomitant]
     Active Substance: LIDOCAINE
     Indication: ADVERSE EVENT
     Dosage: 1 UNK, QD
     Dates: start: 20191228
  22. CLOPIDOGREL BISULFATE. [Suspect]
     Active Substance: CLOPIDOGREL BISULFATE
     Dosage: 75 MG, QD, AT 7:00
     Route: 048
     Dates: start: 20191229, end: 20191229
  23. CLOPIDOGREL BISULFATE. [Suspect]
     Active Substance: CLOPIDOGREL BISULFATE
     Dosage: 75 MG, QD, AT 5:00
     Route: 048
     Dates: start: 20200113, end: 20200113
  24. AMITRIPTYLINE [Concomitant]
     Active Substance: AMITRIPTYLINE
     Dosage: 37.500 MG
     Dates: start: 20191229
  25. CARVEDILOL. [Concomitant]
     Active Substance: CARVEDILOL
     Dosage: 3.125 MG, QD
     Dates: start: 20191227
  26. CLOPIDOGREL BISULFATE. [Suspect]
     Active Substance: CLOPIDOGREL BISULFATE
     Dosage: 75 MG, QD, AT 6.12
     Route: 048
     Dates: start: 20191228, end: 20191228
  27. ACETYLSALICYLIC ACID [Suspect]
     Active Substance: ASPIRIN
     Dosage: 100 MG, QD, AT 6:09
     Route: 048
     Dates: start: 20191225, end: 20191225
  28. ACETYLSALICYLIC ACID [Suspect]
     Active Substance: ASPIRIN
     Dosage: 100 MG, QD, AT 8:02
     Route: 048
     Dates: start: 20191226, end: 20191226
  29. ACETYLSALICYLIC ACID [Suspect]
     Active Substance: ASPIRIN
     Dosage: 100 MG, QD, AT 7:57
     Route: 048
     Dates: start: 20191227, end: 20191227
  30. ACETYLSALICYLIC ACID [Suspect]
     Active Substance: ASPIRIN
     Dosage: 100 MG,
     Route: 048
     Dates: start: 20200114, end: 20200217

REACTIONS (1)
  - Neurological symptom [Recovered/Resolved]

NARRATIVE: CASE EVENT DATE: 20200201
